FAERS Safety Report 7378902-6 (Version None)
Quarter: 2011Q1

REPORT INFORMATION
  Report Type: 
  Country: None (occurrence: None)
  Receive Date: 20110328
  Receipt Date: 20110322
  Transmission Date: 20110831
  Serious: Yes (Death, Life-Threatening, Other)
  Sender: FDA-Public Use
  Company Number: PHHY2011JP19733

PATIENT
  Age: 43 Year
  Sex: Male

DRUGS (8)
  1. FERRITIN [Concomitant]
     Dosage: 25,283 NG/ML
  2. CYTARABINE [Concomitant]
     Indication: ALLOGENIC BONE MARROW TRANSPLANTATION THERAPY
     Dosage: UNK
  3. PREDNISOLONE [Concomitant]
     Dosage: 1 MG/KG
  4. SANDIMMUNE [Suspect]
     Indication: ALLOGENIC BONE MARROW TRANSPLANTATION THERAPY
     Dosage: 1.5 MG/KG TWICE DAILY
     Dates: start: 20090330
  5. SANDIMMUNE [Suspect]
     Indication: GRAFT VERSUS HOST DISEASE
  6. METHOTREXATE [Concomitant]
     Indication: ALLOGENIC BONE MARROW TRANSPLANTATION THERAPY
  7. CYCLOPHOSPHAMIDE [Concomitant]
     Indication: ALLOGENIC BONE MARROW TRANSPLANTATION THERAPY
     Dosage: 120 MG/KG
  8. METHOTREXATE [Concomitant]
     Indication: GRAFT VERSUS HOST DISEASE

REACTIONS (6)
  - SEPSIS [None]
  - RASH [None]
  - HISTIOCYTOSIS HAEMATOPHAGIC [None]
  - GRAFT VERSUS HOST DISEASE [None]
  - HANTAVIRUS PULMONARY INFECTION [None]
  - PYREXIA [None]
